FAERS Safety Report 5238974-1 (Version None)
Quarter: 2007Q1

REPORT INFORMATION
  Report Type: 
  Country: None (occurrence: None)
  Receive Date: 20061208
  Receipt Date: 20050621
  Transmission Date: 20070707
  Serious: Yes (Other)
  Sender: FDA-Public Use
  Company Number: 2005UW08873

PATIENT
  Age: 53 Year
  Sex: Male
  Weight: 71.667 kg

DRUGS (2)
  1. CRESTOR [Suspect]
     Indication: BLOOD CHOLESTEROL INCREASED
     Dosage: 10 MG QD PO
     Route: 048
     Dates: start: 20040624, end: 20050608
  2. ATENOLOL [Concomitant]

REACTIONS (1)
  - GOUT [None]
